FAERS Safety Report 8256855-6 (Version None)
Quarter: 2012Q2

REPORT INFORMATION
  Report Type: 
  Country: None (occurrence: None)
  Receive Date: 20120403
  Receipt Date: 20120328
  Transmission Date: 20120825
  Serious: Yes (Other)
  Sender: FDA-Public Use
  Company Number: FI-PFIZER INC-2012036559

PATIENT
  Age: 20 Year
  Sex: Female
  Weight: 40 kg

DRUGS (4)
  1. SUBUTEX [Suspect]
     Dosage: UNK
     Route: 042
     Dates: start: 20120201
  2. LYRICA [Suspect]
     Dosage: 150 MG, 3X/DAY
     Route: 048
  3. LYRICA [Suspect]
     Dosage: 70 MG, 3X/DAY
     Route: 048
     Dates: end: 20120207
  4. SUBUTEX [Suspect]
     Dosage: 8MG DAILY

REACTIONS (4)
  - DRUG DEPENDENCE [None]
  - DRUG WITHDRAWAL SYNDROME [None]
  - INTENTIONAL DRUG MISUSE [None]
  - VOMITING IN PREGNANCY [None]
